FAERS Safety Report 19575578 (Version 2)
Quarter: 2021Q3

REPORT INFORMATION
  Report Type: Spontaneous
  Country: US (occurrence: US)
  Receive Date: 20210719
  Receipt Date: 20210920
  Transmission Date: 20211014
  Serious: No
  Sender: FDA-Public Use
  Company Number: US-AJANTA PHARMA USA INC.-2113962

PATIENT
  Age: 66 Year
  Sex: Female
  Weight: 88.64 kg

DRUGS (3)
  1. ASPIRIN. [Concomitant]
     Active Substance: ASPIRIN
  2. CALCIUM [Concomitant]
     Active Substance: CALCIUM
  3. CHOLESTYRAMINE (ANDA 211119) [Suspect]
     Active Substance: CHOLESTYRAMINE
     Indication: GASTRIC DISORDER
     Route: 048
     Dates: start: 20210428, end: 20210518

REACTIONS (8)
  - Coating in mouth [Recovered/Resolved]
  - Product use complaint [Recovered/Resolved]
  - Poor quality product administered [Recovered/Resolved]
  - Product solubility abnormal [Recovered/Resolved]
  - Abdominal discomfort [Recovered/Resolved]
  - Constipation [Unknown]
  - Oropharyngeal pain [Recovered/Resolved]
  - Product substitution issue [Recovered/Resolved]

NARRATIVE: CASE EVENT DATE: 2021
